FAERS Safety Report 9801692 (Version 2)
Quarter: 2014Q2

REPORT INFORMATION
  Report Type: Spontaneous
  Country: US (occurrence: US)
  Receive Date: 20140107
  Receipt Date: 20140515
  Transmission Date: 20141212
  Serious: Yes (Death, Other)
  Sender: FDA-Public Use
  Company Number: US-GILEAD-2014-0091351

PATIENT
  Age: 71 Year
  Sex: Female

DRUGS (10)
  1. LETAIRIS [Suspect]
     Indication: PRODUCT USED FOR UNKNOWN INDICATION
     Dosage: 5 MG, QD
     Route: 048
     Dates: start: 20100708, end: 20131212
  2. SIMVASTATIN [Concomitant]
  3. CARVEDILOL [Concomitant]
  4. LISINOPRIL [Concomitant]
  5. COUMADIN                           /00014802/ [Concomitant]
  6. LIPITOR [Concomitant]
  7. CLONIDINE [Concomitant]
  8. ADVAIR [Concomitant]
  9. ALBUTEROL                          /00139501/ [Concomitant]
  10. VITAMIN B 12 [Concomitant]

REACTIONS (1)
  - Death [Fatal]
